FAERS Safety Report 8425581-2 (Version None)
Quarter: 2012Q2

REPORT INFORMATION
  Report Type: 
  Country: None (occurrence: None)
  Receive Date: 20120605
  Receipt Date: 20120529
  Transmission Date: 20120825
  Serious: Yes (Life-Threatening, Disabling)
  Sender: FDA-Public Use
  Company Number: 2012-002035

PATIENT
  Age: 68 Year
  Sex: Female
  Weight: 65.8 kg

DRUGS (3)
  1. INDERAL LA [Concomitant]
  2. ZOPICLONE (ZOPICLONE) [Concomitant]
  3. ACTONEL [Suspect]
     Dosage: 35 MG ONCE WEEKLY, ORAL
     Route: 048

REACTIONS (2)
  - OESOPHAGEAL PAIN [None]
  - INFLAMMATION [None]
